FAERS Safety Report 8254972-8 (Version None)
Quarter: 2012Q2

REPORT INFORMATION
  Report Type: 
  Country: None (occurrence: None)
  Receive Date: 20120403
  Receipt Date: 20120402
  Transmission Date: 20120825
  Serious: No
  Sender: FDA-Public Use
  Company Number: US-JNJFOC-20120307719

PATIENT
  Sex: Female
  Weight: 63.5 kg

DRUGS (13)
  1. ULORIC [Interacting]
     Indication: PRODUCT USED FOR UNKNOWN INDICATION
     Route: 065
     Dates: end: 20110101
  2. ALLOPURINOL [Concomitant]
     Indication: RENAL DISORDER
     Route: 048
     Dates: start: 20110101
  3. FENTANYL [Suspect]
     Indication: RENAL DISORDER
     Route: 062
  4. NEXIUM [Concomitant]
     Indication: FLATULENCE
     Route: 048
     Dates: start: 20070101
  5. TRAMADOL HCL [Concomitant]
     Indication: BREAKTHROUGH PAIN
     Route: 048
  6. DITROPAN [Concomitant]
     Indication: NOCTURIA
     Route: 048
     Dates: start: 20060101
  7. UNKNOWN MEDICATION [Concomitant]
     Indication: RENAL DISORDER
     Route: 048
  8. FENTANYL [Suspect]
     Route: 062
  9. FENTANYL [Suspect]
     Indication: ARTHRITIS
     Route: 062
  10. FENTANYL [Suspect]
     Route: 062
  11. FENTANYL [Suspect]
     Route: 062
  12. FENTANYL [Suspect]
     Route: 062
  13. NORVASC [Concomitant]
     Indication: HYPERTENSION
     Route: 048
     Dates: start: 20070101

REACTIONS (8)
  - VITAMIN D DEFICIENCY [None]
  - THERAPEUTIC RESPONSE DECREASED [None]
  - PRODUCT QUALITY ISSUE [None]
  - FATIGUE [None]
  - CHEST PAIN [None]
  - INADEQUATE ANALGESIA [None]
  - DRUG INTERACTION [None]
  - POOR QUALITY DRUG ADMINISTERED [None]
